FAERS Safety Report 9541600 (Version 1)
Quarter: 2013Q3

REPORT INFORMATION
  Report Type: Spontaneous
  Country: US (occurrence: US)
  Receive Date: 20130923
  Receipt Date: 20130923
  Transmission Date: 20140515
  Serious: No
  Sender: FDA-Public Use
  Company Number: US-009507513-1309USA009275

PATIENT
  Age: 22 Year
  Sex: Female

DRUGS (1)
  1. NEXPLANON [Suspect]
     Indication: CONTRACEPTION
     Dosage: 1 ROD FOR 3 YEARS
     Route: 059
     Dates: start: 20120815

REACTIONS (10)
  - Chromaturia [Unknown]
  - Dry eye [Unknown]
  - Yellow skin [Unknown]
  - Superficial vein prominence [Unknown]
  - Decreased appetite [Unknown]
  - Menstruation irregular [Unknown]
  - Menstruation delayed [Unknown]
  - Dysmenorrhoea [Unknown]
  - Dizziness [Unknown]
  - Fatigue [Unknown]
